FAERS Safety Report 11052315 (Version 3)
Quarter: 2015Q3

REPORT INFORMATION
  Report Type: Spontaneous
  Country: GB (occurrence: GB)
  Receive Date: 20150421
  Receipt Date: 20150731
  Transmission Date: 20151125
  Serious: Yes (Death, Life-Threatening, Hospitalization, Disabling, Other)
  Sender: FDA-Public Use
  Company Number: PHFR2015GB000778

PATIENT
  Sex: Female

DRUGS (9)
  1. VOTUBIA [Suspect]
     Active Substance: EVEROLIMUS
     Dosage: 2.5 MG, BID
     Route: 065
     Dates: start: 20130805
  2. VOTUBIA [Suspect]
     Active Substance: EVEROLIMUS
     Dosage: 5 MG, BID
     Route: 065
     Dates: start: 20130904, end: 201504
  3. CLOBAZAM [Concomitant]
     Active Substance: CLOBAZAM
     Indication: PRODUCT USED FOR UNKNOWN INDICATION
     Dosage: 5 MG, QD
     Route: 048
  4. VOTUBIA [Suspect]
     Active Substance: EVEROLIMUS
     Indication: ASTROCYTOMA, LOW GRADE
     Dosage: UNK
     Route: 065
  5. CHLORAL HYDRATE [Concomitant]
     Active Substance: CHLORAL HYDRATE
     Indication: PRODUCT USED FOR UNKNOWN INDICATION
     Dosage: 600 ML, UNK
     Route: 048
  6. TOPIRAMATE. [Concomitant]
     Active Substance: TOPIRAMATE
     Indication: PRODUCT USED FOR UNKNOWN INDICATION
     Dosage: 300 OT, (140 AM AND 16 PM) UNK
     Route: 048
  7. MIDAZOLAM [Concomitant]
     Active Substance: MIDAZOLAM\MIDAZOLAM HYDROCHLORIDE
     Indication: PRODUCT USED FOR UNKNOWN INDICATION
     Dosage: UNK UNK, PRN
     Route: 048
  8. VIGABATRIN [Concomitant]
     Active Substance: VIGABATRIN
     Indication: PRODUCT USED FOR UNKNOWN INDICATION
     Dosage: 1500 OT, BID
     Route: 048
  9. AZITHROMYCIN [Concomitant]
     Active Substance: AZITHROMYCIN ANHYDROUS
     Indication: PRODUCT USED FOR UNKNOWN INDICATION
     Dosage: UNK UNK, 3 DAYS/ WEEK
     Route: 048

REACTIONS (11)
  - Epilepsy [Not Recovered/Not Resolved]
  - Blepharitis [Unknown]
  - Malaise [Unknown]
  - Mouth ulceration [Unknown]
  - Death [Fatal]
  - Otitis externa [Recovered/Resolved]
  - Infection [Unknown]
  - Varicella [Unknown]
  - Acne [Unknown]
  - Dermatitis acneiform [Not Recovered/Not Resolved]
  - Immunosuppression [Recovered/Resolved with Sequelae]

NARRATIVE: CASE EVENT DATE: 2014
